FAERS Safety Report 4938450-7 (Version None)
Quarter: 2006Q1

REPORT INFORMATION
  Report Type: 
  Country: None (occurrence: None)
  Receive Date: 20060302
  Receipt Date: 20060215
  Transmission Date: 20060701
  Serious: Yes (Hospitalization)
  Sender: FDA-Public Use
  Company Number: FR200602003152

PATIENT
  Age: 78 Year

DRUGS (10)
  1. FORTEO [Suspect]
     Indication: OSTEOPOROSIS
     Dosage: 20 UG, DAILY (1/D), SUBCUTANEOUS
     Route: 058
     Dates: start: 20050301, end: 20060204
  2. FORTEO PEN (FORTEO PEN) [Concomitant]
  3. PEN, DISPOSABLE [Concomitant]
  4. VASTAREL (TRIMETAZIDINE HYDROCHLORIDE) [Concomitant]
  5. DITROPAN [Concomitant]
  6. COKENZEN (CANDESARTAN CILEXETIL, HYDROCHLOROTHIAZIDE) [Concomitant]
  7. ACEBUTOLOL [Concomitant]
  8. LAVOTHYROX (LEVOTHYROXINE SODIUM) [Concomitant]
  9. SINTROM [Concomitant]
  10. OMEPRAZOLE [Concomitant]

REACTIONS (3)
  - BRADYCARDIA [None]
  - CONDITION AGGRAVATED [None]
  - PYELONEPHRITIS [None]
